FAERS Safety Report 12937331 (Version 1)
Quarter: 2016Q4

REPORT INFORMATION
  Report Type: Spontaneous
  Country: US (occurrence: US)
  Receive Date: 20161114
  Receipt Date: 20161114
  Transmission Date: 20170207
  Serious: No
  Sender: FDA-Public Use
  Company Number: US-PFIZER INC-2016528385

PATIENT
  Sex: Female

DRUGS (2)
  1. LYRICA [Suspect]
     Active Substance: PREGABALIN
     Indication: SCIATICA
     Dates: start: 20161106
  2. LYRICA [Suspect]
     Active Substance: PREGABALIN
     Indication: BACK PAIN

REACTIONS (2)
  - Abdominal pain upper [Unknown]
  - Affective disorder [Unknown]
